FAERS Safety Report 17775802 (Version 1)
Quarter: 2020Q2

REPORT INFORMATION
  Report Type: Spontaneous
  Country: CN (occurrence: CN)
  Receive Date: 20200513
  Receipt Date: 20200513
  Transmission Date: 20200714
  Serious: Yes (Other)
  Sender: FDA-Public Use
  Company Number: CN-ROCHE-2597644

PATIENT
  Age: 69 Year
  Sex: Female

DRUGS (19)
  1. XELODA [Suspect]
     Active Substance: CAPECITABINE
     Route: 048
     Dates: start: 20180801
  2. CALCIUM FOLINATE [Concomitant]
     Active Substance: LEUCOVORIN CALCIUM
     Indication: RECTAL ADENOCARCINOMA
     Dosage: 3 CYCLES, DAY 1-2
     Route: 065
     Dates: start: 20170801
  3. CALCIUM FOLINATE [Concomitant]
     Active Substance: LEUCOVORIN CALCIUM
     Route: 065
     Dates: start: 20171223
  4. XELODA [Suspect]
     Active Substance: CAPECITABINE
     Route: 048
     Dates: start: 20190101
  5. OXALIPLATIN. [Concomitant]
     Active Substance: OXALIPLATIN
     Indication: RECTAL ADENOCARCINOMA
     Dosage: 3 CYCLES, DAY 1
     Route: 065
     Dates: start: 20170801
  6. CALCIUM FOLINATE [Concomitant]
     Active Substance: LEUCOVORIN CALCIUM
     Dosage: 1 CYCLES, DAY 1-2
     Route: 065
     Dates: start: 20171101
  7. OTERACIL POTASSIUM [Concomitant]
     Active Substance: OTERACIL POTASSIUM
     Indication: RECTAL ADENOCARCINOMA
     Route: 048
     Dates: start: 201904
  8. FLUOROURACIL. [Concomitant]
     Active Substance: FLUOROURACIL
     Indication: RECTAL ADENOCARCINOMA
     Dosage: 3 CYCLES, DAY 1-2, FOLLOWED BY 2.25G CIV FOR 44 HOURS
     Route: 065
     Dates: start: 20170801
  9. IRINOTECAN [Concomitant]
     Active Substance: IRINOTECAN
     Route: 065
     Dates: start: 20171223
  10. TEGAFUR [Concomitant]
     Active Substance: TEGAFUR
     Indication: RECTAL ADENOCARCINOMA
     Dosage: 3 CYCLES, DAY 2-15
     Route: 048
     Dates: start: 20190401
  11. FLUOROURACIL. [Concomitant]
     Active Substance: FLUOROURACIL
     Dosage: 1 CYCLES, DAY 1-2, FOLLOWED BY 2500MG CIV FOR 44 HOURS
     Route: 065
     Dates: start: 20170801
  12. APATINIB MESYLATE [Concomitant]
     Active Substance: APATINIB
     Indication: RECTAL ADENOCARCINOMA
     Route: 048
     Dates: start: 20180301
  13. FRUQUINTINIB. [Concomitant]
     Active Substance: FRUQUINTINIB
     Indication: RECTAL ADENOCARCINOMA
     Route: 048
     Dates: start: 20200401
  14. IRINOTECAN [Concomitant]
     Active Substance: IRINOTECAN
     Indication: RECTAL ADENOCARCINOMA
     Dosage: 1 CYCLES, DAY 1
     Route: 065
     Dates: start: 20171101
  15. APATINIB MESYLATE [Concomitant]
     Active Substance: APATINIB
     Dosage: EVERY OTHER DAYS
     Route: 048
     Dates: start: 20180301
  16. GIMERACIL [Concomitant]
     Active Substance: GIMERACIL
     Indication: RECTAL ADENOCARCINOMA
     Route: 048
     Dates: start: 201904
  17. XELODA [Suspect]
     Active Substance: CAPECITABINE
     Indication: RECTAL ADENOCARCINOMA
     Route: 048
     Dates: start: 20170101
  18. AVASTIN [Suspect]
     Active Substance: BEVACIZUMAB
     Indication: RECTAL ADENOCARCINOMA
     Route: 065
     Dates: start: 20190401
  19. FLUOROURACIL. [Concomitant]
     Active Substance: FLUOROURACIL
     Route: 065
     Dates: start: 20171223

REACTIONS (1)
  - Protein urine [Unknown]

NARRATIVE: CASE EVENT DATE: 2018
